FAERS Safety Report 5673861-6 (Version None)
Quarter: 2008Q2

REPORT INFORMATION
  Report Type: 
  Country: None (occurrence: None)
  Receive Date: 20080226
  Receipt Date: 20070117
  Transmission Date: 20081010
  Serious: Yes (Hospitalization)
  Sender: FDA-Public Use
  Company Number: 438834

PATIENT
  Age: 15 Year
  Sex: Female
  Weight: 50.3 kg

DRUGS (3)
  1. ACCUTANE [Suspect]
     Indication: ACNE CYSTIC
     Dosage: 40 MG 1 PER 2 DAY ORAL
     Route: 048
     Dates: start: 19980809, end: 19990222
  2. RITALIN [Concomitant]
  3. ORTHO TRI-CYCLEN [Concomitant]

REACTIONS (8)
  - ACNE [None]
  - COLITIS [None]
  - COLITIS ULCERATIVE [None]
  - FATIGUE [None]
  - INFLAMMATORY BOWEL DISEASE [None]
  - IRON DEFICIENCY ANAEMIA [None]
  - LIP DRY [None]
  - PROCTITIS [None]
